FAERS Safety Report 7412104-X (Version None)
Quarter: 2011Q2

REPORT INFORMATION
  Report Type: 
  Country: None (occurrence: None)
  Receive Date: 20110408
  Receipt Date: 20110408
  Transmission Date: 20111010
  Serious: Yes (Hospitalization, Disabling, Other)
  Sender: FDA-Public Use
  Company Number: None

PATIENT
  Age: 44 Year
  Sex: Female
  Weight: 63.5036 kg

DRUGS (2)
  1. LATUDA [Suspect]
     Indication: AFFECTIVE DISORDER
     Dosage: ONE AT NOON PO
     Route: 048
     Dates: start: 20110309, end: 20110311
  2. LATUDA [Suspect]
     Indication: PSYCHOTIC DISORDER
     Dosage: ONE AT NOON PO
     Route: 048
     Dates: start: 20110309, end: 20110311

REACTIONS (7)
  - RASH PRURITIC [None]
  - TACHYCARDIA [None]
  - RASH PAPULAR [None]
  - HYPERTENSION [None]
  - PAIN OF SKIN [None]
  - DRUG INEFFECTIVE [None]
  - VOMITING [None]
